FAERS Safety Report 6534144-5 (Version None)
Quarter: 2010Q1

REPORT INFORMATION
  Report Type: 
  Country: None (occurrence: None)
  Receive Date: 20100112
  Receipt Date: 20091231
  Transmission Date: 20100710
  Serious: Yes (Hospitalization)
  Sender: FDA-Public Use
  Company Number: TW-BAYER-201010939GPV

PATIENT
  Age: 81 Year
  Sex: Male
  Weight: 64 kg

DRUGS (4)
  1. SORAFENIB [Suspect]
     Indication: HEPATIC NEOPLASM MALIGNANT
     Dosage: TOTAL DAILY DOSE: 800 MG
     Route: 048
     Dates: start: 20091201, end: 20091231
  2. ADRIAMYCIN PFS [Concomitant]
     Indication: THERAPEUTIC EMBOLISATION
     Dates: start: 20091125, end: 20091125
  3. SILYMARIN [Concomitant]
     Indication: HEPATITIS B
     Dates: start: 20091024
  4. ACETAMINOPHEN [Concomitant]
     Indication: PROPHYLAXIS
     Dates: start: 20091125, end: 20091130

REACTIONS (1)
  - DEPRESSED LEVEL OF CONSCIOUSNESS [None]
